FAERS Safety Report 5446795-X (Version None)
Quarter: 2007Q3

REPORT INFORMATION
  Report Type: 
  Country: None (occurrence: None)
  Receive Date: 20070907
  Receipt Date: 20070827
  Transmission Date: 20080115
  Serious: Yes (Other)
  Sender: FDA-Public Use
  Company Number: US-PFIZER INC-2007072333

PATIENT
  Sex: Female
  Weight: 50.454 kg

DRUGS (2)
  1. CHANTIX [Suspect]
     Indication: SMOKING CESSATION THERAPY
     Dates: start: 20070401, end: 20070501
  2. PREMARIN [Concomitant]

REACTIONS (3)
  - AGITATION [None]
  - NERVOUSNESS [None]
  - SURGERY [None]
